FAERS Safety Report 10520978 (Version 1)
Quarter: 2014Q4

REPORT INFORMATION
  Report Type: Spontaneous
  Country: BE (occurrence: BE)
  Receive Date: 20141016
  Receipt Date: 20141016
  Transmission Date: 20150528
  Serious: Yes (Other)
  Sender: FDA-Public Use
  Company Number: BE-BEH-2014045538

PATIENT
  Age: 51 Year
  Sex: Female

DRUGS (1)
  1. HIZENTRA [Suspect]
     Active Substance: HUMAN IMMUNOGLOBULIN G
     Route: 058

REACTIONS (5)
  - Lacrimation increased [Unknown]
  - Horner^s syndrome [Unknown]
  - Eyelid ptosis [Unknown]
  - Ophthalmoplegia [Unknown]
  - Epilepsy [Unknown]

NARRATIVE: CASE EVENT DATE: 20140919
